FAERS Safety Report 18588377 (Version 2)
Quarter: 2021Q3

REPORT INFORMATION
  Report Type: Report from Study
  Country: None (occurrence: US)
  Receive Date: 20201208
  Receipt Date: 20210708
  Transmission Date: 20211014
  Serious: Yes (Hospitalization, Other)
  Sender: FDA-Public Use
  Company Number: US-ABBVIE-20K-163-3675355-00

PATIENT
  Age: 73 Year
  Sex: Female

DRUGS (5)
  1. VENCLEXTA [Suspect]
     Active Substance: VENETOCLAX
     Dosage: DOSE REDUCED
     Route: 048
  2. VENCLEXTA [Suspect]
     Active Substance: VENETOCLAX
     Indication: ACUTE MYELOID LEUKAEMIA
     Route: 048
  3. VENCLEXTA [Suspect]
     Active Substance: VENETOCLAX
     Route: 048
     Dates: start: 20191121, end: 201912
  4. VENCLEXTA [Suspect]
     Active Substance: VENETOCLAX
     Route: 048
     Dates: start: 20191121
  5. VENCLEXTA [Suspect]
     Active Substance: VENETOCLAX
     Route: 048
     Dates: start: 201912

REACTIONS (9)
  - Osteomyelitis [Unknown]
  - Haemorrhage [Recovered/Resolved]
  - Platelet count decreased [Unknown]
  - Blood count abnormal [Unknown]
  - Haemoglobin decreased [Unknown]
  - Arthritis bacterial [Unknown]
  - Blood iron decreased [Unknown]
  - Bone marrow disorder [Unknown]
  - Neutrophil count decreased [Unknown]

NARRATIVE: CASE EVENT DATE: 202008
